FAERS Safety Report 18324598 (Version 3)
Quarter: 2020Q4

REPORT INFORMATION
  Report Type: Report from Study
  Country: US (occurrence: US)
  Receive Date: 20200928
  Receipt Date: 20201015
  Transmission Date: 20210113
  Serious: Yes (Disabling, Other)
  Sender: FDA-Public Use
  Company Number: NVSC2020US262579

PATIENT
  Age: 77 Year
  Sex: Female

DRUGS (3)
  1. TAFINLAR [Suspect]
     Active Substance: DABRAFENIB MESYLATE
     Indication: LUNG NEOPLASM MALIGNANT
     Dosage: 150 MG, ONCE2SDO
     Route: 048
     Dates: start: 20200917
  2. MEKINIST [Suspect]
     Active Substance: TRAMETINIB DIMETHYL SULFOXIDE
     Indication: LUNG NEOPLASM MALIGNANT
     Dosage: 2 MG, QD (ONCE DAILY)
     Route: 048
     Dates: start: 20200917
  3. TAFINLAR [Suspect]
     Active Substance: DABRAFENIB MESYLATE
     Dosage: 150 MG/KG, BID
     Route: 048

REACTIONS (8)
  - Fatigue [Recovering/Resolving]
  - Thrombosis [Not Recovered/Not Resolved]
  - Loss of personal independence in daily activities [Recovering/Resolving]
  - Tremor [Recovered/Resolved]
  - Pyrexia [Recovered/Resolved]
  - Product dose omission issue [Recovered/Resolved]
  - Peripheral swelling [Recovering/Resolving]
  - Chills [Recovering/Resolving]

NARRATIVE: CASE EVENT DATE: 20201002
